FAERS Safety Report 5025085-3 (Version None)
Quarter: 2006Q2

REPORT INFORMATION
  Report Type: 
  Country: None (occurrence: None)
  Receive Date: 20060608
  Receipt Date: 20060608
  Transmission Date: 20061013
  Serious: Yes (Other)
  Sender: FDA-Public Use
  Company Number: None

PATIENT
  Age: 15 Year
  Sex: Female
  Weight: 48.3 kg

DRUGS (2)
  1. AZITHROMYCIN [Suspect]
     Indication: CYSTIC FIBROSIS
     Dosage: 2 TABS M,W,F PO
     Route: 048
     Dates: start: 20060201
  2. AZITHROMYCIN [Suspect]
     Indication: CYSTIC FIBROSIS
     Dosage: 2 TABS M,W,F PO
     Route: 048
     Dates: start: 20060308

REACTIONS (2)
  - NAUSEA [None]
  - VOMITING [None]
